FAERS Safety Report 5031002-2 (Version None)
Quarter: 2006Q2

REPORT INFORMATION
  Report Type: 
  Country: None (occurrence: None)
  Receive Date: 20060621
  Receipt Date: 20060405
  Transmission Date: 20061013
  Serious: No
  Sender: FDA-Public Use
  Company Number: US-GLAXOSMITHKLINE-A0600567A

PATIENT
  Age: 43 Year
  Sex: Female

DRUGS (6)
  1. FLOVENT [Suspect]
     Indication: ASTHMA
     Dosage: 110MCG TWICE PER DAY
     Route: 055
     Dates: start: 20050101, end: 20060403
  2. FLOVENT [Suspect]
     Dosage: 110MCG TWICE PER DAY
     Route: 055
     Dates: start: 20010101, end: 20050101
  3. SYNTHROID [Concomitant]
  4. SINGULAIR [Concomitant]
  5. WELLBUTRIN XL [Concomitant]
  6. PREMPRO [Concomitant]

REACTIONS (4)
  - DYSPHONIA [None]
  - GASTROOESOPHAGEAL REFLUX DISEASE [None]
  - OESOPHAGEAL CANDIDIASIS [None]
  - ORAL CANDIDIASIS [None]
